FAERS Safety Report 8118034-2 (Version None)
Quarter: 2012Q1

REPORT INFORMATION
  Report Type: 
  Country: None (occurrence: None)
  Receive Date: 20120201
  Receipt Date: 20110603
  Transmission Date: 20120608
  Serious: Yes (Other)
  Sender: FDA-Public Use
  Company Number: 2011000937

PATIENT
  Age: 29 Year
  Sex: Male

DRUGS (8)
  1. 6-KETO-DIOSGENIN DECANOATE [Suspect]
     Dates: end: 20110110
  2. 25R-SPIROSTAN-5A-DIOL-6-ONE-UNDECANOATE [Suspect]
     Dates: end: 20110110
  3. 6-KETO-DIOSGENIN DECANOATE [Suspect]
     Dates: end: 20110110
  4. 6-KETO-DIOSGENIN PROPIONATE [Suspect]
     Dates: end: 20110110
  5. RAPHONTICUM CARTHAMOIDES [Suspect]
     Dates: end: 20110110
  6. HECOGENIN CAPSULES [Suspect]
     Dates: end: 20110110
  7. ERYTHROMYCIN [Suspect]
     Indication: ACNE
     Dosage: (250 MG)
     Dates: start: 20040101
  8. 6-KETO-DIOSGENIN CYPIONATE [Suspect]
     Dates: end: 20110110

REACTIONS (1)
  - HEPATITIS C [None]
